FAERS Safety Report 5537320-3 (Version None)
Quarter: 2007Q4

REPORT INFORMATION
  Report Type: 
  Country: None (occurrence: None)
  Receive Date: 20071207
  Receipt Date: 20071127
  Transmission Date: 20080405
  Serious: Yes (Death, Other)
  Sender: FDA-Public Use
  Company Number: CH-ROCHE-445306

PATIENT
  Sex: Female
  Weight: 1.4 kg

DRUGS (4)
  1. RIVOTRIL [Suspect]
     Indication: DRUG USE FOR UNKNOWN INDICATION
     Dates: start: 20050101, end: 20060317
  2. SEROPRAM [Suspect]
     Indication: DEPRESSION
     Dates: start: 20050101
  3. SEROPRAM [Suspect]
  4. REMERON [Suspect]
     Indication: DRUG USE FOR UNKNOWN INDICATION
     Dates: start: 20060318, end: 20060327

REACTIONS (5)
  - DEATH NEONATAL [None]
  - DRUG EXPOSURE DURING PREGNANCY [None]
  - PREMATURE BABY [None]
  - PREMATURE RUPTURE OF MEMBRANES [None]
  - SEPSIS NEONATAL [None]
